FAERS Safety Report 4833767-9 (Version None)
Quarter: 2005Q4

REPORT INFORMATION
  Report Type: 
  Country: None (occurrence: None)
  Receive Date: 20051118
  Receipt Date: 20051118
  Transmission Date: 20060501
  Serious: Yes (Other)
  Sender: FDA-Public Use
  Company Number: None

PATIENT
  Sex: Female
  Weight: 47.6277 kg

DRUGS (2)
  1. EFFEXOR XR [Suspect]
     Indication: ANXIETY
     Dates: start: 20050705, end: 20051110
  2. EFFEXOR XR [Suspect]

REACTIONS (3)
  - INSOMNIA [None]
  - NAUSEA [None]
  - VERTIGO [None]
